FAERS Safety Report 9439733 (Version 1)
Quarter: 2013Q3

REPORT INFORMATION
  Report Type: Spontaneous
  Country: US (occurrence: None)
  Receive Date: 20130802
  Receipt Date: 20130802
  Transmission Date: 20140515
  Serious: Yes (Other)
  Sender: FDA-Public Use
  Company Number: None

PATIENT
  Age: 80 Year
  Sex: Male
  Weight: 81 kg

DRUGS (12)
  1. XARELTO [Suspect]
     Dosage: 15 MG DAILY
     Dates: start: 20130113
  2. ADVAIR [Concomitant]
  3. CRESTOR [Concomitant]
  4. FLOMAX [Concomitant]
  5. PLAVIX [Concomitant]
  6. TYLENOL [Concomitant]
  7. VICODIN [Concomitant]
  8. SOTALOL [Concomitant]
  9. FOLIC ACID [Concomitant]
  10. SYNTHROID [Concomitant]
  11. MTX [Concomitant]
  12. PREDMIN [Concomitant]

REACTIONS (4)
  - Convulsion [None]
  - Tremor [None]
  - Agitation [None]
  - Aggression [None]
